FAERS Safety Report 12572909 (Version 1)
Quarter: 2016Q3

REPORT INFORMATION
  Report Type: Spontaneous
  Country: US (occurrence: US)
  Receive Date: 20160720
  Receipt Date: 20160720
  Transmission Date: 20161109
  Serious: Yes (Other)
  Sender: FDA-Public Use
  Company Number: PHEH2016US017901

PATIENT
  Sex: Male

DRUGS (1)
  1. AFINITOR [Suspect]
     Active Substance: EVEROLIMUS
     Indication: RENAL CELL CARCINOMA
     Dosage: 5 MG, QD (ONCE DAILY)
     Route: 048
     Dates: start: 20160627

REACTIONS (6)
  - Headache [Recovered/Resolved]
  - Blood pressure increased [Recovering/Resolving]
  - Erythema [Not Recovered/Not Resolved]
  - Skin fissures [Not Recovered/Not Resolved]
  - Cough [Recovered/Resolved]
  - Metastasis [Not Recovered/Not Resolved]
